FAERS Safety Report 25349660 (Version 2)
Quarter: 2025Q2

REPORT INFORMATION
  Report Type: Spontaneous
  Country: US (occurrence: US)
  Receive Date: 20250522
  Receipt Date: 20250605
  Transmission Date: 20250716
  Serious: No
  Sender: BAUSCH AND LOMB
  Company Number: US-BAUSCHBL-2025BNL008876

PATIENT
  Age: 75 Year
  Sex: Female

DRUGS (1)
  1. TIMOLOL [Suspect]
     Active Substance: TIMOLOL
     Indication: Glaucoma
     Route: 047

REACTIONS (4)
  - Lacrimation increased [Unknown]
  - Vision blurred [Unknown]
  - Accidental exposure to product [Unknown]
  - Exposure via skin contact [Unknown]
